FAERS Safety Report 15492606 (Version 2)
Quarter: 2019Q2

REPORT INFORMATION
  Report Type: Spontaneous
  Country: DE (occurrence: DE)
  Receive Date: 20181012
  Receipt Date: 20190606
  Transmission Date: 20190711
  Serious: Yes (Life-Threatening, Other)
  Sender: FDA-Public Use
  Company Number: DE-AUROBINDO-AUR-APL-2017-40087

PATIENT

DRUGS (19)
  1. ATORVASTATIN [Concomitant]
     Active Substance: ATORVASTATIN
     Indication: HYPERLIPIDAEMIA
     Dosage: 20 MILLIGRAM, ONCE A DAY
     Route: 065
  2. HYDROCHLOROTHIAZIDE. [Concomitant]
     Active Substance: HYDROCHLOROTHIAZIDE
     Indication: HYPERTENSION
     Dosage: 12.5 MILLIGRAM, ONCE A DAY
     Route: 065
  3. DULOXETINE. [Suspect]
     Active Substance: DULOXETINE
     Indication: DEPRESSIVE SYMPTOM
     Dosage: REDUCTION OF DULOXETINE DOSE
     Route: 065
  4. TRAMADOL. [Interacting]
     Active Substance: TRAMADOL
     Indication: PAIN
     Dosage: 75 MILLIGRAM, ONCE A DAY
     Route: 065
  5. MIRTAZAPINE. [Concomitant]
     Active Substance: MIRTAZAPINE
     Indication: SEDATIVE THERAPY
     Dosage: 75 MILLIGRAM, ONCE A DAY
     Route: 065
  6. DULOXETINE. [Interacting]
     Active Substance: DULOXETINE
     Dosage: 60 MILLIGRAM, ONCE A DAY, REDUCTION OF DULOXETINE DOSE
     Route: 065
  7. DULOXETINE. [Interacting]
     Active Substance: DULOXETINE
     Dosage: 30 MILLIGRAM, ONCE A DAY
     Route: 065
  8. DULOXETINE. [Interacting]
     Active Substance: DULOXETINE
     Dosage: 30 MG, QD
     Route: 065
  9. BISOPROLOL [Concomitant]
     Active Substance: BISOPROLOL
     Indication: HYPERTENSION
     Dosage: 2.5 MILLIGRAM, ONCE A DAY
     Route: 065
  10. ATORVASTATIN [Concomitant]
     Active Substance: ATORVASTATIN
     Dosage: 40 MILLIGRAM, ONCE A DAY
     Route: 065
  11. DULOXETINE. [Interacting]
     Active Substance: DULOXETINE
     Dosage: UNK (UP TO 90 MG PER DAY)
     Route: 065
  12. AGOMELATINE [Concomitant]
     Active Substance: AGOMELATINE
     Indication: SEDATIVE THERAPY
     Dosage: 25 MILLIGRAM, ONCE A DAY
     Route: 065
  13. NICOTINE. [Concomitant]
     Active Substance: NICOTINE
     Indication: PRODUCT USED FOR UNKNOWN INDICATION
     Dosage: UNK
     Route: 065
  14. DULOXETINE. [Interacting]
     Active Substance: DULOXETINE
     Dosage: 90 MILLIGRAM, ONCE A DAY
     Route: 065
  15. QUETIAPINE. [Concomitant]
     Active Substance: QUETIAPINE
     Indication: ANXIETY
     Dosage: 100 MILLIGRAM, ONCE A DAY
     Route: 065
  16. DULOXETINE. [Interacting]
     Active Substance: DULOXETINE
     Dosage: 60 MG, QD (REDUCTION OF DULOXETINE DOSE)
     Route: 065
  17. BISOPROLOL [Concomitant]
     Active Substance: BISOPROLOL
     Dosage: 10 MILLIGRAM, ONCE A DAY
     Route: 065
  18. PIPAMPERONE [Concomitant]
     Active Substance: PIPAMPERONE
     Indication: SEDATIVE THERAPY
     Dosage: 20 MILLIGRAM, ONCE A DAY
     Route: 065
  19. ALCOHOL. [Concomitant]
     Active Substance: ALCOHOL
     Indication: PRODUCT USED FOR UNKNOWN INDICATION
     Dosage: UNK
     Route: 065

REACTIONS (9)
  - Thinking abnormal [Recovered/Resolved]
  - Hyperhidrosis [Recovered/Resolved]
  - Serotonin syndrome [Recovering/Resolving]
  - Psychomotor hyperactivity [Recovered/Resolved]
  - Tachycardia [Recovered/Resolved]
  - Drug interaction [Recovering/Resolving]
  - Disinhibition [Recovered/Resolved]
  - Hypomania [Recovered/Resolved]
  - Drug level increased [Recovering/Resolving]
